FAERS Safety Report 13507856 (Version 2)
Quarter: 2017Q2

REPORT INFORMATION
  Report Type: Spontaneous
  Country: US (occurrence: US)
  Receive Date: 20170503
  Receipt Date: 20170530
  Transmission Date: 20170830
  Serious: Yes (Hospitalization)
  Sender: FDA-Public Use
  Company Number: US-PFIZER INC-2017188414

PATIENT
  Age: 57 Year
  Sex: Female
  Weight: 63.5 kg

DRUGS (4)
  1. PROGESTERONE. [Suspect]
     Active Substance: PROGESTERONE
     Dosage: 0.5 MG, CYCLIC (0.5 MG/DAY/5 DAYS OFF)
     Route: 067
     Dates: start: 20140606
  2. PREMARIN [Suspect]
     Active Substance: ESTROGENS, CONJUGATED
     Indication: HORMONE REPLACEMENT THERAPY
     Dosage: 0.5 MG, CYCLIC (0.5 MG/DAY/5 DAYS OFF)
     Dates: start: 20170405
  3. PREMARIN [Suspect]
     Active Substance: ESTROGENS, CONJUGATED
     Dosage: 2 TO 3 TIME WEEK THEREAFTER/ DID IT 7 DAYS, INSTEAD OF THE 14 DAYS/ 4 TIMES OF THE EVERY 3 DAYS
     Route: 067
     Dates: start: 20170406
  4. IBUPROFEN. [Concomitant]
     Active Substance: IBUPROFEN
     Dosage: 800 MG, 2X/DAY
     Dates: start: 201103

REACTIONS (5)
  - Libido increased [Recovered/Resolved]
  - Intentional product misuse [Recovered/Resolved]
  - Fatigue [Not Recovered/Not Resolved]
  - Abdominal pain [Recovered/Resolved]
  - Inappropriate schedule of drug administration [Recovered/Resolved]

NARRATIVE: CASE EVENT DATE: 20170406
